FAERS Safety Report 12716724 (Version 1)
Quarter: 2016Q3

REPORT INFORMATION
  Report Type: Report from Study
  Country: US (occurrence: US)
  Receive Date: 20160906
  Receipt Date: 20160906
  Transmission Date: 20161109
  Serious: Yes (Other)
  Sender: FDA-Public Use
  Company Number: US-BRACCO-013883

PATIENT

DRUGS (7)
  1. PROHANCE [Suspect]
     Active Substance: GADOTERIDOL
     Indication: NUCLEAR MAGNETIC RESONANCE IMAGING
  2. MAGNEVIST [Suspect]
     Active Substance: GADOPENTETATE DIMEGLUMINE
     Indication: NUCLEAR MAGNETIC RESONANCE IMAGING
  3. MULTIHANCE [Suspect]
     Active Substance: GADOBENATE DIMEGLUMINE
     Indication: NUCLEAR MAGNETIC RESONANCE IMAGING
  4. CONTRAST MEDIA [Suspect]
     Active Substance: UNSPECIFIED INGREDIENT
     Indication: NUCLEAR MAGNETIC RESONANCE IMAGING
  5. GADAVIST [Suspect]
     Active Substance: GADOBUTROL
     Indication: NUCLEAR MAGNETIC RESONANCE IMAGING
  6. OMNISCAN [Suspect]
     Active Substance: GADODIAMIDE
     Indication: NUCLEAR MAGNETIC RESONANCE IMAGING
  7. OPTIMARK [Suspect]
     Active Substance: GADOVERSETAMIDE
     Indication: NUCLEAR MAGNETIC RESONANCE IMAGING

REACTIONS (11)
  - Neuralgia [Unknown]
  - Bone pain [Unknown]
  - Skin hypertrophy [Unknown]
  - Central pain syndrome [Unknown]
  - Headache [Unknown]
  - Urine analysis abnormal [Unknown]
  - Mental impairment [Unknown]
  - Hair metal test abnormal [Unknown]
  - Biopsy thyroid gland abnormal [Unknown]
  - Biopsy skin abnormal [Unknown]
  - Blood heavy metal increased [Unknown]
